FAERS Safety Report 5452379-X (Version None)
Quarter: 2007Q3

REPORT INFORMATION
  Report Type: 
  Country: None (occurrence: None)
  Receive Date: 20070914
  Receipt Date: 20070904
  Transmission Date: 20080115
  Serious: Yes (Hospitalization, Other)
  Sender: FDA-Public Use
  Company Number: IT-ABBOTT-06P-083-0353410-00

PATIENT
  Age: 38 Year
  Sex: Female

DRUGS (5)
  1. LOPINAVIR AND RITONAVIR [Suspect]
     Indication: SYSTEMIC ANTIVIRAL TREATMENT
     Dosage: NOT REPORTED
  2. LAMIVUDINE [Concomitant]
     Indication: SYSTEMIC ANTIVIRAL TREATMENT
     Dosage: NOT REPORTED
  3. STAVUDINE [Concomitant]
     Indication: SYSTEMIC ANTIVIRAL TREATMENT
     Dosage: NOT REPORTED
  4. FLUCONAZOLE [Concomitant]
     Indication: OESOPHAGEAL CANDIDIASIS
     Dosage: NOT REPORTED
  5. ATOVAQUONE [Concomitant]
     Indication: PROPHYLAXIS
     Dosage: NOT REPORTED

REACTIONS (3)
  - HEPATOTOXICITY [None]
  - NEPHROPATHY TOXIC [None]
  - STEVENS-JOHNSON SYNDROME [None]
